FAERS Safety Report 19661803 (Version 1)
Quarter: 2021Q3

REPORT INFORMATION
  Report Type: Spontaneous
  Country: IT (occurrence: IT)
  Receive Date: 20210805
  Receipt Date: 20210805
  Transmission Date: 20211014
  Serious: Yes (Other)
  Sender: FDA-Public Use
  Company Number: IT-PFIZER INC-202100969641

PATIENT
  Age: 67 Year
  Sex: Female

DRUGS (4)
  1. RISEDRONIC ACID [Concomitant]
     Active Substance: RISEDRONIC ACID
     Indication: OSTEOARTHRITIS
     Dosage: UNK
  2. CALCIUM CARBONATE W/VITAMIN D [CALCIUM CARBONATE;COLECALCIFEROL] [Concomitant]
     Active Substance: CALCIUM CARBONATE\CHOLECALCIFEROL
     Indication: OSTEOARTHRITIS
  3. INDOBUFEN [Concomitant]
     Active Substance: INDOBUFEN
     Indication: OSTEOARTHRITIS
  4. CELECOXIB. [Suspect]
     Active Substance: CELECOXIB
     Indication: OSTEOARTHRITIS
     Dosage: UNK

REACTIONS (2)
  - Urinary retention [Recovered/Resolved]
  - Hypertension [Recovered/Resolved]
